FAERS Safety Report 7070459-2 (Version None)
Quarter: 2010Q4

REPORT INFORMATION
  Report Type: 
  Country: None (occurrence: None)
  Receive Date: 20101028
  Receipt Date: 20101028
  Transmission Date: 20110411
  Serious: Yes (Life-Threatening)
  Sender: FDA-Public Use
  Company Number: None

PATIENT
  Age: 29 Year
  Sex: Female
  Weight: 61.4 kg

DRUGS (5)
  1. CELEXA [Suspect]
     Indication: ANXIETY
     Dosage: CELEXA, SMALLEST DOSE 1 X ORAL
     Route: 048
     Dates: start: 20080201
  2. CELEXA [Suspect]
     Indication: SLEEP DISORDER
     Dosage: CELEXA, SMALLEST DOSE 1 X ORAL
     Route: 048
     Dates: start: 20080201
  3. DEPLIN SMALLEST [Suspect]
     Dosage: DEPLIN, SMALLEST DOSE
  4. VITAMINS: MAGNESIUM [Concomitant]
  5. MULTI-VITAMINS [Concomitant]

REACTIONS (3)
  - BURNING SENSATION [None]
  - INSOMNIA [None]
  - LOSS OF CONSCIOUSNESS [None]
